FAERS Safety Report 8336155-6 (Version None)
Quarter: 2012Q1

REPORT INFORMATION
  Report Type: 
  Country: None (occurrence: None)
  Receive Date: 20120329
  Receipt Date: 20091111
  Transmission Date: 20120608
  Serious: Yes (Other)
  Sender: FDA-Public Use
  Company Number: PHEH2009US15636

PATIENT
  Age: 56 Year
  Sex: Male
  Weight: 70.7 kg

DRUGS (2)
  1. EXELON [Suspect]
     Indication: DEMENTIA ALZHEIMER'S TYPE
     Dosage: 4.6 MG, TRANSDERMAL ; 9.5 MG, TRANSDERMAL
     Route: 062
     Dates: start: 20090629
  2. EXELON [Suspect]
     Indication: DEMENTIA ALZHEIMER'S TYPE
     Dosage: 4.6 MG, TRANSDERMAL ; 9.5 MG, TRANSDERMAL
     Route: 062
     Dates: start: 20090729, end: 20090902

REACTIONS (2)
  - DIZZINESS [None]
  - FALL [None]
